FAERS Safety Report 9818076 (Version 2)
Quarter: 2014Q1

REPORT INFORMATION
  Report Type: Spontaneous
  Country: US (occurrence: US)
  Receive Date: 20140115
  Receipt Date: 20140116
  Transmission Date: 20141002
  Serious: Yes (Death, Life-Threatening, Other)
  Sender: FDA-Public Use
  Company Number: US-MERCK-1401USA004797

PATIENT
  Sex: Female
  Weight: 81.63 kg

DRUGS (3)
  1. JANUVIA [Suspect]
     Indication: TYPE 2 DIABETES MELLITUS
     Dosage: 100 MG, QD
     Route: 048
     Dates: start: 20101209, end: 20110309
  2. METFORMIN [Concomitant]
     Indication: TYPE 2 DIABETES MELLITUS
  3. GLYBURIDE [Concomitant]
     Indication: TYPE 2 DIABETES MELLITUS

REACTIONS (14)
  - Pancreatic carcinoma [Fatal]
  - Metastases to bone [Unknown]
  - Metastases to lymph nodes [Unknown]
  - Cholecystectomy [Unknown]
  - Metastases to liver [Unknown]
  - Pulmonary mass [Unknown]
  - Splenic granuloma [Unknown]
  - Pericardial effusion [Unknown]
  - Kidney fibrosis [Unknown]
  - Nephrolithiasis [Unknown]
  - Diverticulum [Unknown]
  - Malignant ascites [Unknown]
  - Paranasal cyst [Unknown]
  - Goitre [Unknown]
